FAERS Safety Report 9009470 (Version 2)
Quarter: 2014Q2

REPORT INFORMATION
  Report Type: Spontaneous
  Country: US (occurrence: US)
  Receive Date: 20130110
  Receipt Date: 20140502
  Transmission Date: 20141212
  Serious: Yes (Other)
  Sender: FDA-Public Use
  Company Number: US-AMGEN-USASP2013000830

PATIENT
  Age: 30 Year
  Sex: Female

DRUGS (4)
  1. ENBREL [Suspect]
     Indication: RHEUMATOID ARTHRITIS
     Dosage: 50 MG,
     Route: 065
     Dates: start: 20031020
  2. ARAVA [Concomitant]
     Dosage: 20 MG, DAILY
     Dates: start: 2002
  3. HUMIRA [Concomitant]
     Dosage: UNK
  4. KINERET [Concomitant]
     Dosage: UNK

REACTIONS (15)
  - Neoplasm [Recovered/Resolved]
  - Arthropathy [Recovered/Resolved]
  - Arthralgia [Recovered/Resolved]
  - Oedema peripheral [Recovered/Resolved]
  - Pain [Recovered/Resolved]
  - Drug intolerance [Recovered/Resolved]
  - Vomiting [Recovered/Resolved]
  - Joint swelling [Recovered/Resolved]
  - Mobility decreased [Recovered/Resolved]
  - Nodule [Recovered/Resolved]
  - Swelling [Recovered/Resolved]
  - Scar [Not Recovered/Not Resolved]
  - Peripheral swelling [Recovered/Resolved]
  - Drug ineffective [Recovered/Resolved]
  - Oral herpes [Recovered/Resolved]
